FAERS Safety Report 5315248-1 (Version None)
Quarter: 2007Q2

REPORT INFORMATION
  Report Type: 
  Country: None (occurrence: None)
  Receive Date: 20070502
  Receipt Date: 20070420
  Transmission Date: 20071010
  Serious: Yes (Other)
  Sender: FDA-Public Use
  Company Number: FR-PFIZER INC-2007031948

PATIENT
  Sex: Male

DRUGS (4)
  1. ALDACTONE [Suspect]
     Route: 065
     Dates: end: 20070101
  2. CANDESARTAN CILEXETIL [Concomitant]
  3. FUROSEMIDE [Concomitant]
  4. CLONIDINE HCL [Concomitant]

REACTIONS (2)
  - ANGINA PECTORIS [None]
  - VERTIGO [None]
